FAERS Safety Report 12638225 (Version 1)
Quarter: 2016Q3

REPORT INFORMATION
  Report Type: Spontaneous
  Country: US (occurrence: US)
  Receive Date: 20160809
  Receipt Date: 20160809
  Transmission Date: 20161109
  Serious: No
  Sender: FDA-Public Use
  Company Number: US-SA-2016SA084071

PATIENT
  Age: 68 Year
  Sex: Female

DRUGS (4)
  1. ALIROCUMAB PREFILLED PEN [Concomitant]
     Active Substance: ALIROCUMAB
  2. PRALUENT [Suspect]
     Active Substance: ALIROCUMAB
     Route: 065
  3. PRALUENT [Suspect]
     Active Substance: ALIROCUMAB
     Route: 065
  4. AZITHROMYCIN ANHYDROUS. [Suspect]
     Active Substance: AZITHROMYCIN ANHYDROUS
     Route: 065
     Dates: start: 2016

REACTIONS (2)
  - Rash [Unknown]
  - Unevaluable event [Unknown]
